FAERS Safety Report 9753246 (Version 3)
Quarter: 2015Q3

REPORT INFORMATION
  Report Type: Spontaneous
  Country: US (occurrence: US)
  Receive Date: 20131213
  Receipt Date: 20150805
  Transmission Date: 20151125
  Serious: No
  Sender: FDA-Public Use
  Company Number: US-GILEAD-2010-0027621

PATIENT
  Age: 71 Year
  Sex: Male

DRUGS (13)
  1. BENICAR [Concomitant]
     Active Substance: OLMESARTAN MEDOXOMIL
  2. JANUVIA [Concomitant]
     Active Substance: SITAGLIPTIN PHOSPHATE
  3. ASPIRIN. [Concomitant]
     Active Substance: ASPIRIN
  4. DIGOXIN. [Concomitant]
     Active Substance: DIGOXIN
  5. STARLIX [Concomitant]
     Active Substance: NATEGLINIDE
  6. MULTIVITAMIN [Concomitant]
     Active Substance: VITAMINS
  7. LETAIRIS [Suspect]
     Active Substance: AMBRISENTAN
     Indication: PULMONARY ARTERIAL HYPERTENSION
     Route: 048
     Dates: start: 20091021
  8. NEXIUM [Concomitant]
     Active Substance: ESOMEPRAZOLE MAGNESIUM
  9. PRECOSE [Concomitant]
     Active Substance: ACARBOSE
  10. SERTRALINE [Concomitant]
     Active Substance: SERTRALINE HYDROCHLORIDE
  11. METOPROLOL [Concomitant]
     Active Substance: METOPROLOL
  12. SIMVASTATIN. [Concomitant]
     Active Substance: SIMVASTATIN
  13. METFORMIN [Concomitant]
     Active Substance: METFORMIN HYDROCHLORIDE

REACTIONS (3)
  - Palpitations [Unknown]
  - Dyspnoea [Unknown]
  - Peripheral swelling [Unknown]
